FAERS Safety Report 7550449-3 (Version None)
Quarter: 2011Q2

REPORT INFORMATION
  Report Type: 
  Country: None (occurrence: None)
  Receive Date: 20110615
  Receipt Date: 20110325
  Transmission Date: 20111010
  Serious: No
  Sender: FDA-Public Use
  Company Number: US-BAUSCH-2011BL001980

PATIENT
  Age: 85 Year
  Sex: Female

DRUGS (3)
  1. COZAAR [Concomitant]
     Indication: HYPERTENSION
     Route: 048
     Dates: start: 20090101
  2. BESIVANCE [Suspect]
     Indication: OFF LABEL USE
     Route: 047
     Dates: start: 20110325, end: 20110326
  3. BESIVANCE [Suspect]
     Indication: SUPERFICIAL INJURY OF EYE
     Route: 047
     Dates: start: 20110325, end: 20110326

REACTIONS (1)
  - DIZZINESS [None]
